FAERS Safety Report 5474032-9 (Version None)
Quarter: 2007Q3

REPORT INFORMATION
  Report Type: 
  Country: None (occurrence: None)
  Receive Date: 20070928
  Receipt Date: 20070928
  Transmission Date: 20080115
  Serious: Yes (Death)
  Sender: FDA-Public Use
  Company Number: None

PATIENT
  Age: 62 Year
  Sex: Female
  Weight: 68.0396 kg

DRUGS (1)
  1. AVANDIA [Suspect]
     Indication: DIABETES MELLITUS
     Dosage: ONCE A DAY BY MOUTH  4 OR 5 YEARS 1999 OR 2000
     Route: 048

REACTIONS (2)
  - CARDIAC ARREST [None]
  - MALAISE [None]
